FAERS Safety Report 12944057 (Version 1)
Quarter: 2016Q4

REPORT INFORMATION
  Report Type: Spontaneous
  Country: US (occurrence: US)
  Receive Date: 20161115
  Receipt Date: 20161115
  Transmission Date: 20170207
  Serious: No
  Sender: FDA-Public Use
  Company Number: US-ROCHE-1742069

PATIENT
  Age: 48 Year
  Sex: Female

DRUGS (8)
  1. METHADONE HCL [Concomitant]
     Active Substance: METHADONE HYDROCHLORIDE
  2. TYKERB [Concomitant]
     Active Substance: LAPATINIB DITOSYLATE
  3. HERCEPTIN [Suspect]
     Active Substance: TRASTUZUMAB
     Indication: BREAST CANCER
     Route: 065
  4. GABAPENTIN. [Concomitant]
     Active Substance: GABAPENTIN
  5. BENICAR [Concomitant]
     Active Substance: OLMESARTAN MEDOXOMIL
  6. RESTORIL [Concomitant]
     Active Substance: TEMAZEPAM
  7. WARFARIN SODIUM. [Concomitant]
     Active Substance: WARFARIN SODIUM
  8. POTASSIUM CHLORIDE ERT [Concomitant]

REACTIONS (3)
  - Oral mucosal blistering [Unknown]
  - Oral pain [Unknown]
  - Arthralgia [Unknown]
